FAERS Safety Report 25587811 (Version 1)
Quarter: 2025Q3

REPORT INFORMATION
  Report Type: Spontaneous
  Country: US (occurrence: US)
  Receive Date: 20250721
  Receipt Date: 20250721
  Transmission Date: 20251020
  Serious: Yes (Life-Threatening, Other)
  Sender: BRECKENRIDGE PHARMACEUTICAL, INC.
  Company Number: US-Breckenridge Pharmaceutical, Inc.-2180920

PATIENT
  Age: 18 Year
  Sex: Male

DRUGS (2)
  1. ASENAPINE [Suspect]
     Active Substance: ASENAPINE
  2. ELOCTATE [Concomitant]
     Active Substance: EFMOROCTOCOG ALFA

REACTIONS (3)
  - Gastrointestinal haemorrhage [Unknown]
  - Abdominal pain upper [Unknown]
  - Dyspepsia [Unknown]
